FAERS Safety Report 16545019 (Version 2)
Quarter: 2019Q3

REPORT INFORMATION
  Report Type: Spontaneous
  Country: JP (occurrence: JP)
  Receive Date: 20190709
  Receipt Date: 20190724
  Transmission Date: 20191004
  Serious: Yes (Hospitalization)
  Sender: FDA-Public Use
  Company Number: JP-JNJFOC-20190700962

PATIENT
  Age: 20 Year
  Sex: Male
  Weight: 48.8 kg

DRUGS (15)
  1. IMURAN [Suspect]
     Active Substance: AZATHIOPRINE
     Indication: COLITIS ULCERATIVE
     Route: 048
     Dates: start: 20150107
  2. TACROLIMUS MONOHYDRATE [Suspect]
     Active Substance: TACROLIMUS
     Indication: COLITIS ULCERATIVE
     Route: 048
     Dates: start: 20160311
  3. PREDONINE [Suspect]
     Active Substance: PREDNISOLONE
     Indication: COLITIS ULCERATIVE
     Route: 048
     Dates: start: 20190423, end: 2019
  4. LIALDA [Concomitant]
     Active Substance: MESALAMINE
     Indication: COLITIS ULCERATIVE
     Route: 048
     Dates: start: 20171226
  5. PROGRAF [Concomitant]
     Active Substance: TACROLIMUS\TACROLIMUS ANHYDROUS
     Indication: COLITIS ULCERATIVE
     Route: 048
  6. SIMPONI [Suspect]
     Active Substance: GOLIMUMAB
     Indication: COLITIS ULCERATIVE
     Route: 058
     Dates: start: 20180921, end: 20190613
  7. BUDESONIDE. [Concomitant]
     Active Substance: BUDESONIDE
     Indication: COLITIS ULCERATIVE
     Route: 054
  8. PREDONINE [Suspect]
     Active Substance: PREDNISOLONE
     Route: 048
     Dates: start: 2019, end: 20190529
  9. BUDESONIDE. [Concomitant]
     Active Substance: BUDESONIDE
     Indication: COLITIS ULCERATIVE
     Route: 054
     Dates: start: 20180905
  10. CALFINA [Concomitant]
     Active Substance: ALFACALCIDOL
     Indication: OSTEOPOROSIS
     Route: 048
  11. JZOLOFT [Concomitant]
     Active Substance: SERTRALINE HYDROCHLORIDE
     Indication: ANXIETY DISORDER
     Route: 048
     Dates: start: 20150723
  12. SIMPONI [Suspect]
     Active Substance: GOLIMUMAB
     Route: 058
     Dates: start: 20180905, end: 20180905
  13. PREDONINE [Suspect]
     Active Substance: PREDNISOLONE
     Dosage: 25 MG (15MG +10MG)
     Route: 048
     Dates: start: 20190605
  14. PROGRAF [Concomitant]
     Active Substance: TACROLIMUS\TACROLIMUS ANHYDROUS
     Indication: COLITIS ULCERATIVE
     Route: 048
  15. FAMOTIDINE. [Concomitant]
     Active Substance: FAMOTIDINE
     Indication: PROPHYLAXIS AGAINST GASTROINTESTINAL ULCER
     Route: 048
     Dates: start: 20190428

REACTIONS (1)
  - Lung abscess [Recovering/Resolving]

NARRATIVE: CASE EVENT DATE: 20190613
